APPROVED DRUG PRODUCT: SORAFENIB TOSYLATE
Active Ingredient: SORAFENIB TOSYLATE
Strength: EQ 200MG BASE
Dosage Form/Route: TABLET;ORAL
Application: A207012 | Product #001 | TE Code: AB
Applicant: MYLAN PHARMACEUTICALS INC
Approved: Sep 10, 2020 | RLD: No | RS: No | Type: RX